FAERS Safety Report 7132055-8 (Version None)
Quarter: 2010Q4

REPORT INFORMATION
  Report Type: 
  Country: None (occurrence: None)
  Receive Date: 20101202
  Receipt Date: 20101118
  Transmission Date: 20110411
  Serious: No
  Sender: FDA-Public Use
  Company Number: PHHY2010US68993

PATIENT
  Sex: Male

DRUGS (2)
  1. TASIGNA [Suspect]
     Indication: CHRONIC MYELOID LEUKAEMIA
     Dosage: 200 MG, BID
     Route: 048
     Dates: start: 20100924, end: 20101007
  2. TASIGNA [Suspect]
     Dosage: 400 MG, BID
     Route: 048
     Dates: start: 20101010

REACTIONS (6)
  - DRUG EXPOSURE DURING PREGNANCY [None]
  - HEADACHE [None]
  - INCORRECT DOSE ADMINISTERED [None]
  - PREGNANCY OF PARTNER [None]
  - PRURITUS GENERALISED [None]
  - RASH GENERALISED [None]
